FAERS Safety Report 25463454 (Version 1)
Quarter: 2025Q2

REPORT INFORMATION
  Report Type: Spontaneous
  Country: US (occurrence: US)
  Receive Date: 20250620
  Receipt Date: 20250620
  Transmission Date: 20250717
  Serious: No
  Sender: ALEXION PHARMACEUTICALS
  Company Number: US-AstraZeneca-CH-00893849AP

PATIENT
  Age: 62 Year

DRUGS (1)
  1. FASENRA [Suspect]
     Active Substance: BENRALIZUMAB
     Route: 065

REACTIONS (6)
  - Illness [Unknown]
  - Dyspnoea [Unknown]
  - Inappropriate schedule of product administration [Unknown]
  - Device delivery system issue [Unknown]
  - Device leakage [Unknown]
  - Needle issue [Unknown]
